FAERS Safety Report 10414079 (Version 2)
Quarter: 2014Q3

REPORT INFORMATION
  Report Type: Spontaneous
  Country: US (occurrence: US)
  Receive Date: 20140827
  Receipt Date: 20140827
  Transmission Date: 20150326
  Serious: No
  Sender: FDA-Public Use
  Company Number: US-ASTRAZENECA-2013SE75141

PATIENT
  Age: 68 Year
  Sex: Female
  Weight: 77.6 kg

DRUGS (1)
  1. SYMBICORT [Suspect]
     Active Substance: BUDESONIDE\FORMOTEROL FUMARATE DIHYDRATE
     Indication: ASTHMA
     Dosage: 160/4.5 MCG, 2 PUFFS BID
     Route: 055
     Dates: start: 20130923

REACTIONS (3)
  - Malaise [Unknown]
  - Oesophageal disorder [Not Recovered/Not Resolved]
  - Intentional product misuse [Unknown]
